FAERS Safety Report 9475698 (Version 1)
Quarter: 2013Q3

REPORT INFORMATION
  Report Type: Report from Study
  Country: NZ (occurrence: NZ)
  Receive Date: 20130826
  Receipt Date: 20130826
  Transmission Date: 20140515
  Serious: Yes (Hospitalization)
  Sender: FDA-Public Use
  Company Number: PHHY2013NZ091241

PATIENT
  Age: 63 Year
  Sex: Male

DRUGS (6)
  1. CLOZARIL [Suspect]
     Indication: SCHIZOPHRENIA, PARANOID TYPE
     Dosage: 150 MG, QD
     Route: 048
     Dates: start: 20051015, end: 20130314
  2. CLOZARIL [Suspect]
     Dosage: UNK UKN, UNK
  3. SODIUM VALPROATE [Concomitant]
     Indication: SCHIZOPHRENIA, PARANOID TYPE
     Dosage: 1000 MG, BID
     Route: 048
  4. METFORMIN [Concomitant]
     Indication: HYPERGLYCAEMIA
     Dosage: 500 MG, BID
     Route: 048
  5. SIMVASTATIN [Concomitant]
     Indication: HYPERCHOLESTEROLAEMIA
     Dosage: 40 MG, NOCTE
     Route: 048
  6. OXYBUTYNIN [Concomitant]
     Indication: URINARY INCONTINENCE
     Dosage: 5 MG, NOCTE
     Route: 048

REACTIONS (2)
  - Mental disorder [Unknown]
  - Antipsychotic drug level decreased [Unknown]
